FAERS Safety Report 9183681 (Version 1)
Quarter: 2013Q1

REPORT INFORMATION
  Report Type: Spontaneous
  Country: US (occurrence: US)
  Receive Date: 20130322
  Receipt Date: 20130322
  Transmission Date: 20140127
  Serious: No
  Sender: FDA-Public Use
  Company Number: US-BRISTOL-MYERS SQUIBB COMPANY-16581464

PATIENT
  Age: 32 Year
  Sex: Male
  Weight: 99.77 kg

DRUGS (2)
  1. ERBITUX [Suspect]
  2. LIPITOR [Concomitant]

REACTIONS (1)
  - Accidental exposure to product [Unknown]
